FAERS Safety Report 5010517-7 (Version None)
Quarter: 2006Q2

REPORT INFORMATION
  Report Type: 
  Country: None (occurrence: None)
  Receive Date: 20060525
  Receipt Date: 20060214
  Transmission Date: 20061013
  Serious: No
  Sender: FDA-Public Use
  Company Number: US-GLAXOSMITHKLINE-A0593712A

PATIENT

DRUGS (2)
  1. BACTROBAN [Suspect]
     Route: 045
     Dates: start: 20060213
  2. NO CONCURRENT MEDICATION [Concomitant]

REACTIONS (1)
  - RHINALGIA [None]
